FAERS Safety Report 21559382 (Version 3)
Quarter: 2023Q1

REPORT INFORMATION
  Report Type: Spontaneous
  Country: US (occurrence: US)
  Receive Date: 20221107
  Receipt Date: 20230224
  Transmission Date: 20230417
  Serious: No
  Sender: FDA-Public Use
  Company Number: US-BRISTOL-MYERS SQUIBB COMPANY-2022-133442

PATIENT
  Age: 86 Year
  Sex: Male

DRUGS (3)
  1. REVLIMID [Suspect]
     Active Substance: LENALIDOMIDE
     Indication: Mantle cell lymphoma
     Dosage: FREQ - TAKE 1 CAPSULE BY MOUTH DAILY FOR 21 DAYS ON, FOLLOWED BY 7 DAYS OFF
     Route: 048
  2. REVLIMID [Suspect]
     Active Substance: LENALIDOMIDE
     Indication: Lymphadenopathy
     Dosage: FREQ - TAKE 1 CAPSULE BY MOUTH DAILY FOR 21 DAYS ON, FOLLOWED BY 7 DAYS OFF
     Route: 048
     Dates: start: 20220125
  3. REVLIMID [Suspect]
     Active Substance: LENALIDOMIDE
     Dosage: FREQ - TAKE 1 CAPSULE BY MOUTH DAILY FOR 21 DAYS ON, FOLLOWED BY 7 DAYS OFF
     Route: 048
     Dates: start: 20220125

REACTIONS (2)
  - Diarrhoea [Not Recovered/Not Resolved]
  - Confusional state [Not Recovered/Not Resolved]
